FAERS Safety Report 6960435-X (Version None)
Quarter: 2010Q3

REPORT INFORMATION
  Report Type: 
  Country: None (occurrence: None)
  Receive Date: 20100901
  Receipt Date: 20100819
  Transmission Date: 20110219
  Serious: Yes (Hospitalization)
  Sender: FDA-Public Use
  Company Number: FR-ELI_LILLY_AND_COMPANY-FR201008005297

PATIENT
  Age: 62 Year
  Sex: Male

DRUGS (8)
  1. EFFIENT [Suspect]
     Dosage: 1 D/F, DAILY (1/D)
     Route: 048
     Dates: start: 20100501
  2. KREDEX [Concomitant]
     Dosage: 25 MG, DAILY (1/D)
     Route: 048
     Dates: start: 20100501
  3. GLUCOR [Concomitant]
     Dosage: UNK, UNKNOWN
     Route: 048
     Dates: start: 20100501
  4. PRAVASTATIN [Concomitant]
     Dosage: 1 D/F, DAILY (1/D)
     Route: 048
     Dates: start: 20100501
  5. AMLODIPINE [Concomitant]
     Dosage: UNK, UNKNOWN
     Route: 065
  6. PANTOPRAZOLE [Concomitant]
     Dosage: UNK, UNKNOWN
     Route: 065
  7. KARDEGIC [Concomitant]
     Dosage: UNK, UNKNOWN
     Route: 065
  8. IXPRIM [Concomitant]
     Dosage: UNK, UNKNOWN
     Route: 065

REACTIONS (5)
  - C-REACTIVE PROTEIN ABNORMAL [None]
  - CHEST DISCOMFORT [None]
  - EOSINOPHILIA [None]
  - RENAL FAILURE ACUTE [None]
  - TROPONIN INCREASED [None]
